FAERS Safety Report 7380742-9 (Version None)
Quarter: 2011Q1

REPORT INFORMATION
  Report Type: 
  Country: None (occurrence: None)
  Receive Date: 20110329
  Receipt Date: 20110318
  Transmission Date: 20110831
  Serious: Yes (Hospitalization)
  Sender: FDA-Public Use
  Company Number: A0757542A

PATIENT
  Age: 28 Year
  Sex: Male
  Weight: 181.4 kg

DRUGS (11)
  1. MEDROL [Concomitant]
  2. GLYTRIN [Concomitant]
  3. LISINOPRIL [Concomitant]
  4. ZYPREXA [Concomitant]
  5. AVANDIA [Suspect]
     Dosage: 2MG PER DAY
     Route: 048
     Dates: start: 20050101, end: 20080101
  6. PLENDIL [Concomitant]
  7. WELLBUTRIN [Concomitant]
  8. WELLBUTRIN XL [Concomitant]
  9. PROTONIX [Concomitant]
  10. ZYRTEC [Concomitant]
  11. PROCARDIA [Concomitant]

REACTIONS (2)
  - MYOCARDIAL INFARCTION [None]
  - CARDIAC FAILURE CONGESTIVE [None]
